FAERS Safety Report 8380367-2 (Version None)
Quarter: 2012Q2

REPORT INFORMATION
  Report Type: 
  Country: None (occurrence: None)
  Receive Date: 20120523
  Receipt Date: 20120515
  Transmission Date: 20120825
  Serious: Yes (Hospitalization, Other)
  Sender: FDA-Public Use
  Company Number: CA-UCBSA-053369

PATIENT
  Age: 43 Year
  Sex: Female
  Weight: 65.27 kg

DRUGS (14)
  1. ACTONEL [Concomitant]
     Indication: OSTEOPOROSIS
     Route: 048
  2. ACTONEL DR [Concomitant]
     Indication: BONE DISORDER
     Route: 048
     Dates: start: 20111215
  3. CIMZIA [Suspect]
     Indication: RHEUMATOID ARTHRITIS
     Route: 058
     Dates: start: 20120227, end: 20120314
  4. DILANTIN [Concomitant]
     Indication: EPILEPSY
     Route: 048
     Dates: start: 19860101
  5. PLAQUENIL [Concomitant]
     Indication: INFLAMMATION
     Route: 048
     Dates: start: 20111215
  6. LEVOTHYROXINE SODIUM [Concomitant]
     Indication: HYPOTHYROIDISM
     Route: 048
     Dates: start: 19940101
  7. SLOW FE [Concomitant]
     Indication: MINERAL SUPPLEMENTATION
     Dosage: 1 TABLET ONCE DAILY
     Route: 048
  8. PREDNISONE [Concomitant]
     Indication: RHEUMATOID ARTHRITIS
     Route: 048
     Dates: start: 20120130
  9. OMEPRAZOLE (PRISOLEC) [Concomitant]
     Indication: PROPHYLAXIS AGAINST GASTROINTESTINAL ULCER
     Route: 048
  10. TYLENOL W/ CODEINE NO. 3 [Concomitant]
     Indication: RHEUMATOID ARTHRITIS
     Dosage: I-II TABS ONCE IN 4 TO 6 HOURS AS NECESSARY
     Route: 048
     Dates: start: 20110101
  11. VITAMIN D [Concomitant]
     Indication: VITAMIN SUPPLEMENTATION
     Route: 048
  12. LEVOTHYROXINE SODIUM [Concomitant]
     Route: 048
  13. PREDNISONE [Concomitant]
     Indication: INFLAMMATION
     Route: 048
     Dates: start: 20120130
  14. PLAQUENIL [Concomitant]
     Indication: RHEUMATOID ARTHRITIS
     Route: 048
     Dates: start: 20111215

REACTIONS (15)
  - DEHYDRATION [None]
  - DISORIENTATION [None]
  - FALL [None]
  - FATIGUE [None]
  - COUGH [None]
  - HEADACHE [None]
  - UPPER RESPIRATORY TRACT INFECTION [None]
  - DIZZINESS [None]
  - VERTIGO [None]
  - DIARRHOEA [None]
  - BALANCE DISORDER [None]
  - DEPRESSED LEVEL OF CONSCIOUSNESS [None]
  - PYREXIA [None]
  - PALPITATIONS [None]
  - FEELING ABNORMAL [None]
